FAERS Safety Report 7406127-4 (Version None)
Quarter: 2011Q2

REPORT INFORMATION
  Report Type: 
  Country: None (occurrence: None)
  Receive Date: 20110406
  Receipt Date: 20110406
  Transmission Date: 20111010
  Serious: No
  Sender: FDA-Public Use
  Company Number: None

PATIENT

DRUGS (1)
  1. NIZATIDINE [Suspect]
     Indication: BARRETT'S OESOPHAGUS
     Dosage: 150 MG BID PO (PATIENT STATES REACTED AFTER TAKING FIRST PILL)
     Route: 048

REACTIONS (2)
  - RASH [None]
  - PRODUCT SUBSTITUTION ISSUE [None]
